FAERS Safety Report 4273692-8 (Version None)
Quarter: 2004Q1

REPORT INFORMATION
  Report Type: 
  Country: None (occurrence: None)
  Receive Date: 20040114
  Receipt Date: 20031125
  Transmission Date: 20041129
  Serious: Yes (Hospitalization)
  Sender: FDA-Public Use
  Company Number: US_030796240

PATIENT
  Age: 34 Year
  Sex: Female

DRUGS (3)
  1. OLANZAPINE [Suspect]
     Indication: SCHIZOPHRENIA
     Dosage: 10 MG/DAY
     Dates: start: 20030427, end: 20030627
  2. LEVOMEPROMAZINE [Concomitant]
  3. TRIFLUOPERAZINE HCL [Concomitant]

REACTIONS (6)
  - BACTERIAL INFECTION [None]
  - BLOOD CULTURE POSITIVE [None]
  - BONE MARROW DEPRESSION [None]
  - GASTRIC DISORDER [None]
  - METRORRHAGIA [None]
  - PANCYTOPENIA [None]
